FAERS Safety Report 17314889 (Version 1)
Quarter: 2020Q1

REPORT INFORMATION
  Report Type: Spontaneous
  Country: US (occurrence: US)
  Receive Date: 20200123
  Receipt Date: 20200123
  Transmission Date: 20200409
  Serious: Yes (Other)
  Sender: FDA-Public Use
  Company Number: None

PATIENT
  Age: 57 Year
  Sex: Male
  Weight: 88.45 kg

DRUGS (1)
  1. METFORMIN HYDROCHLORIDE. [Suspect]
     Active Substance: METFORMIN HYDROCHLORIDE
     Route: 048

REACTIONS (4)
  - Diarrhoea [None]
  - Acne [None]
  - Disturbance in attention [None]
  - Pain [None]

NARRATIVE: CASE EVENT DATE: 20191106
